FAERS Safety Report 18187420 (Version 1)
Quarter: 2020Q3

REPORT INFORMATION
  Report Type: Report from Study
  Country: None (occurrence: CN)
  Receive Date: 20200824
  Receipt Date: 20200824
  Transmission Date: 20201103
  Serious: Yes (Death, Life-Threatening, Other)
  Sender: FDA-Public Use
  Company Number: CN-ABBVIE-20K-035-3537079-00

PATIENT

DRUGS (3)
  1. IMBRUVICA [Suspect]
     Active Substance: IBRUTINIB
     Indication: CHRONIC LYMPHOCYTIC LEUKAEMIA
     Route: 048
  2. IMBRUVICA [Suspect]
     Active Substance: IBRUTINIB
     Indication: LYMPHOCYTIC LYMPHOMA
     Route: 048
  3. IMBRUVICA [Suspect]
     Active Substance: IBRUTINIB
     Indication: DIFFUSE LARGE B-CELL LYMPHOMA

REACTIONS (18)
  - Gastrointestinal infection [Fatal]
  - Pneumonia [Recovered/Resolved]
  - Rash [Unknown]
  - Soft tissue infection [Unknown]
  - Richter^s syndrome [Unknown]
  - Arthralgia [Recovered/Resolved]
  - Platelet count decreased [Recovered/Resolved]
  - Hepatic cancer [Fatal]
  - Retinal vascular occlusion [Unknown]
  - Asthenia [Recovered/Resolved]
  - Septic shock [Fatal]
  - Neutropenia [Recovered/Resolved]
  - Skin infection [Unknown]
  - Atrial fibrillation [Unknown]
  - Anaemia [Recovered/Resolved]
  - Epistaxis [Recovered/Resolved]
  - Skin haemorrhage [Recovered/Resolved]
  - Diarrhoea [Recovered/Resolved]
